FAERS Safety Report 15983615 (Version 1)
Quarter: 2019Q1

REPORT INFORMATION
  Report Type: Spontaneous
  Country: ES (occurrence: ES)
  Receive Date: 20190219
  Receipt Date: 20190219
  Transmission Date: 20190418
  Serious: Yes (Other)
  Sender: FDA-Public Use
  Company Number: ES-TEVA-2019-ES-1012873

PATIENT
  Age: 66 Year
  Sex: Male
  Weight: 85 kg

DRUGS (7)
  1. TAMSULOSINA CLORHIDRATO 400 MCG [Concomitant]
     Dosage: 400 MCG / 24 H
     Dates: start: 20130425
  2. GLIBENCLAMIDA 5 MG [Concomitant]
     Indication: DIABETES MELLITUS
     Dosage: 5 MG/12H
     Dates: start: 20130425
  3. METFORMINA 850 MG [Concomitant]
     Indication: DIABETES MELLITUS
     Dosage: 850 MG
     Route: 048
     Dates: start: 20130425
  4. OMEPRAZOL 20 MG [Concomitant]
     Active Substance: OMEPRAZOLE
     Route: 048
     Dates: start: 20130425
  5. ATORVASTATINA [Suspect]
     Active Substance: ATORVASTATIN
     Indication: BLOOD CHOLESTEROL
     Route: 048
     Dates: start: 20130426, end: 20130510
  6. AAS [Concomitant]
     Active Substance: ASPIRIN
     Dosage: 100 MG/DAY
  7. BETAMETASONA 500MG / SALICILICO 20 MG/ML 60 ML [Concomitant]
     Route: 061
     Dates: start: 20130426

REACTIONS (1)
  - Muscle rupture [Not Recovered/Not Resolved]

NARRATIVE: CASE EVENT DATE: 20130504
